FAERS Safety Report 8232937-X (Version None)
Quarter: 2012Q1

REPORT INFORMATION
  Report Type: 
  Country: None (occurrence: None)
  Receive Date: 20120325
  Receipt Date: 20120312
  Transmission Date: 20120608
  Serious: Yes (Death, Hospitalization, Other)
  Sender: FDA-Public Use
  Company Number: US-MYLANLABS-2012S1006081

PATIENT
  Sex: Male
  Weight: 59.38 kg

DRUGS (43)
  1. ANCEF /00288502/ [Concomitant]
  2. DIGIBIND [Concomitant]
  3. IMDUR [Concomitant]
  4. NYSTATIN [Concomitant]
  5. METHOTREXATE [Concomitant]
  6. BUMETANIDE [Concomitant]
  7. CHOLECALCIFEROL [Concomitant]
  8. FLUNISOLIDE [Concomitant]
  9. LISINOPRIL [Concomitant]
  10. PROCRIT /00909301/ [Concomitant]
  11. SINGULAIR [Concomitant]
  12. ATROVENT [Concomitant]
  13. BACID [Concomitant]
  14. SEPTRA [Concomitant]
  15. MEGACE [Concomitant]
  16. MIRAPEX [Concomitant]
  17. ACCOLATE [Concomitant]
  18. FLONASE [Concomitant]
  19. PACERONE [Concomitant]
  20. SIMVASTATIN [Concomitant]
  21. DIGOXIN [Suspect]
     Route: 048
     Dates: start: 20030729, end: 20090707
  22. ALTACE [Concomitant]
  23. LOMOTIL [Concomitant]
  24. LOSARTAN POTASSIUM [Concomitant]
  25. POTASSIUM CHLORIDE [Concomitant]
  26. ASMANEX TWISTHALER [Concomitant]
  27. FLOMAX [Concomitant]
  28. LEVOXYL [Concomitant]
  29. SULFASALAZINE [Concomitant]
  30. NORVASC [Concomitant]
  31. BALSALAZIDE DISODIUM [Concomitant]
  32. VITAMIN B-12 [Concomitant]
  33. ASPIRIN [Concomitant]
  34. COUMADIN [Concomitant]
  35. METOPROLOL SUCCINATE [Concomitant]
  36. TERAZOSIN HCL [Concomitant]
  37. VITAMIN B6 [Concomitant]
  38. FOLIC ACID [Concomitant]
  39. HYDROXYCHLOROQUINE SULFATE [Concomitant]
  40. IPRATROPIUM BROMIDE [Concomitant]
  41. MEDROL [Concomitant]
  42. MOMETASONE FUROATE [Concomitant]
  43. VITAMIN K TAB [Concomitant]

REACTIONS (48)
  - ARRHYTHMIA [None]
  - RENAL FAILURE ACUTE [None]
  - DECREASED APPETITE [None]
  - ORAL CANDIDIASIS [None]
  - DEATH [None]
  - PULMONARY HYPERTENSION [None]
  - AORTIC VALVE INCOMPETENCE [None]
  - CARDIOMEGALY [None]
  - CHRONIC OBSTRUCTIVE PULMONARY DISEASE [None]
  - HIATUS HERNIA [None]
  - HYPOACUSIS [None]
  - MALNUTRITION [None]
  - MITRAL VALVE INCOMPETENCE [None]
  - MUSCLE ATROPHY [None]
  - BIFASCICULAR BLOCK [None]
  - FUNGAL INFECTION [None]
  - RENAL FAILURE CHRONIC [None]
  - WALKING AID USER [None]
  - COLITIS ULCERATIVE [None]
  - TRICUSPID VALVE INCOMPETENCE [None]
  - RESTLESS LEGS SYNDROME [None]
  - TOXICITY TO VARIOUS AGENTS [None]
  - DEHYDRATION [None]
  - ANAEMIA MACROCYTIC [None]
  - BUNDLE BRANCH BLOCK BILATERAL [None]
  - CATARACT [None]
  - CHEST PAIN [None]
  - OEDEMA PERIPHERAL [None]
  - SPINAL OSTEOARTHRITIS [None]
  - WEIGHT DECREASED [None]
  - ASTHENIA [None]
  - CHOLELITHIASIS [None]
  - CONFUSIONAL STATE [None]
  - PULMONARY CONGESTION [None]
  - ISCHAEMIC CARDIOMYOPATHY [None]
  - TRANSIENT ISCHAEMIC ATTACK [None]
  - APHAKIA [None]
  - BLOOD HOMOCYSTEINE INCREASED [None]
  - ECHOCARDIOGRAM ABNORMAL [None]
  - IMPLANTABLE DEFIBRILLATOR INSERTION [None]
  - RENAL CYST [None]
  - RHINITIS ALLERGIC [None]
  - ATRIAL FIBRILLATION [None]
  - CARDIOVERSION [None]
  - HYPOAESTHESIA [None]
  - SINUS BRADYCARDIA [None]
  - UNDERWEIGHT [None]
  - VISUAL IMPAIRMENT [None]
